FAERS Safety Report 9115311 (Version 1)
Quarter: 2013Q1

REPORT INFORMATION
  Report Type: Spontaneous
  Country: US (occurrence: US)
  Receive Date: 20130225
  Receipt Date: 20130225
  Transmission Date: 20140127
  Serious: No
  Sender: FDA-Public Use
  Company Number: PHEH2013US004487

PATIENT
  Sex: Female

DRUGS (2)
  1. TASIGNA [Suspect]
     Indication: CHRONIC MYELOID LEUKAEMIA
     Dosage: 300 MG, BID
     Route: 048
     Dates: start: 20130118
  2. TASIGNA [Suspect]
     Dosage: 150 MG, BID
     Route: 048

REACTIONS (2)
  - Wrong technique in drug usage process [Unknown]
  - Rash [Recovering/Resolving]
